FAERS Safety Report 6904414-7 (Version None)
Quarter: 2010Q3

REPORT INFORMATION
  Report Type: 
  Country: None (occurrence: None)
  Receive Date: 20100804
  Receipt Date: 20090512
  Transmission Date: 20110219
  Serious: No
  Sender: FDA-Public Use
  Company Number: US-PFIZER INC-2009197842

PATIENT
  Sex: Male
  Weight: 94.331 kg

DRUGS (6)
  1. LYRICA [Suspect]
     Indication: BURNING SENSATION
     Dosage: 50 MG, 3X/DAY
     Route: 048
     Dates: start: 20070901
  2. LYRICA [Suspect]
     Indication: PAIN
  3. ZESTRIL [Concomitant]
     Dosage: UNK
  4. METOPROLOL TARTRATE [Concomitant]
     Dosage: UNK
  5. METFORMIN [Concomitant]
     Dosage: UNK
  6. IBUPROFEN [Concomitant]
     Dosage: 800 MG, UNK

REACTIONS (4)
  - DRY MOUTH [None]
  - HUNGER [None]
  - INCREASED APPETITE [None]
  - WEIGHT INCREASED [None]
